FAERS Safety Report 10959123 (Version 2)
Quarter: 2015Q2

REPORT INFORMATION
  Report Type: Spontaneous
  Country: US (occurrence: US)
  Receive Date: 20150327
  Receipt Date: 20150525
  Transmission Date: 20150821
  Serious: No
  Sender: FDA-Public Use
  Company Number: US-JNJFOC-20140912729

PATIENT
  Sex: Male
  Weight: 88 kg

DRUGS (5)
  1. DURAGESIC [Suspect]
     Active Substance: FENTANYL
     Indication: BACK PAIN
     Route: 062
     Dates: start: 2011
  2. NORCO [Concomitant]
     Active Substance: ACETAMINOPHEN\HYDROCODONE BITARTRATE
     Indication: BACK PAIN
     Route: 048
     Dates: start: 2012
  3. XANAX [Concomitant]
     Active Substance: ALPRAZOLAM
     Indication: BACK PAIN
     Route: 048
  4. DURAGESIC [Suspect]
     Active Substance: FENTANYL
     Indication: PAIN IN EXTREMITY
     Route: 062
     Dates: start: 2011
  5. ATENOLOL. [Concomitant]
     Active Substance: ATENOLOL
     Indication: CARDIAC DISORDER
     Route: 048
     Dates: start: 201212

REACTIONS (1)
  - Pain [Not Recovered/Not Resolved]

NARRATIVE: CASE EVENT DATE: 2011
